FAERS Safety Report 15756992 (Version 3)
Quarter: 2019Q2

REPORT INFORMATION
  Report Type: Report from Study
  Country: US (occurrence: US)
  Receive Date: 20181224
  Receipt Date: 20190604
  Transmission Date: 20190711
  Serious: Yes (Other)
  Sender: FDA-Public Use
  Company Number: US-BRISTOL-MYERS SQUIBB COMPANY-BMS-2018-116874

PATIENT
  Sex: Female

DRUGS (1)
  1. ABATACEPT [Suspect]
     Active Substance: ABATACEPT
     Indication: RHEUMATOID ARTHRITIS
     Dosage: 125 MILLIGRAM, QWK
     Route: 065

REACTIONS (6)
  - Iatrogenic injury [Unknown]
  - Spinal stenosis [Unknown]
  - Intervertebral disc disorder [Unknown]
  - Cataract [Unknown]
  - Intervertebral disc displacement [Unknown]
  - Ocular procedural complication [Unknown]
